FAERS Safety Report 4464855-7 (Version None)
Quarter: 2004Q4

REPORT INFORMATION
  Report Type: 
  Country: None (occurrence: None)
  Receive Date: 20041004
  Receipt Date: 20031124
  Transmission Date: 20050328
  Serious: Yes (Hospitalization)
  Sender: FDA-Public Use
  Company Number: MCN352844

PATIENT
  Sex: Male

DRUGS (1)
  1. COREG [Suspect]
     Indication: PROPHYLAXIS
     Route: 048
     Dates: end: 20031117

REACTIONS (2)
  - CHEST PAIN [None]
  - DRUG INEFFECTIVE [None]
